FAERS Safety Report 19073412 (Version 1)
Quarter: 2021Q1

REPORT INFORMATION
  Report Type: Spontaneous
  Country: US (occurrence: US)
  Receive Date: 20210330
  Receipt Date: 20210330
  Transmission Date: 20210420
  Serious: Yes (Life-Threatening, Hospitalization)
  Sender: FDA-Public Use
  Company Number: None

PATIENT
  Age: 70 Year
  Sex: Female

DRUGS (1)
  1. REPATHA [Suspect]
     Active Substance: EVOLOCUMAB
     Indication: HYPERLIPIDAEMIA
     Dosage: ?          OTHER FREQUENCY:Q 14 DAYS;?
     Route: 030
     Dates: start: 20210309, end: 20210309

REACTIONS (6)
  - Pharyngeal swelling [None]
  - Erythema [None]
  - Dyspnoea [None]
  - Dysphonia [None]
  - Oedema [None]
  - Throat tightness [None]

NARRATIVE: CASE EVENT DATE: 20210301
